FAERS Safety Report 7729756-7 (Version None)
Quarter: 2011Q3

REPORT INFORMATION
  Report Type: 
  Country: None (occurrence: None)
  Receive Date: 20110906
  Receipt Date: 20110831
  Transmission Date: 20111222
  Serious: Yes (Death)
  Sender: FDA-Public Use
  Company Number: CH-ROCHE-758780

PATIENT
  Sex: Female
  Weight: 110 kg

DRUGS (3)
  1. METHOXY POLYETHYLENE GLYCOL-EPOETIN BETA [Suspect]
     Route: 065
     Dates: start: 20091110, end: 20100209
  2. EPREX [Concomitant]
     Dates: end: 20091001
  3. FERROUS SULFATE TAB [Concomitant]
     Dates: start: 20091110

REACTIONS (1)
  - CARDIAC ARREST [None]
